FAERS Safety Report 15451611 (Version 2)
Quarter: 2018Q4

REPORT INFORMATION
  Report Type: Spontaneous
  Country: US (occurrence: US)
  Receive Date: 20181001
  Receipt Date: 20181210
  Transmission Date: 20190204
  Serious: Yes (Other)
  Sender: FDA-Public Use
  Company Number: US-GLAXOSMITHKLINE-US2018173535

PATIENT
  Age: 6 Year
  Sex: Female

DRUGS (2)
  1. FLOVENT HFA [Suspect]
     Active Substance: FLUTICASONE PROPIONATE
     Indication: PRODUCT USED FOR UNKNOWN INDICATION
     Dosage: UNK UNK, U
     Dates: start: 201209
  2. VENTOLIN [Suspect]
     Active Substance: ALBUTEROL SULFATE
     Indication: ASTHMA
     Dosage: UNK UNK, PRN
     Route: 055
     Dates: start: 201205

REACTIONS (12)
  - Product use issue [Unknown]
  - Off label use [Unknown]
  - Pain in extremity [Recovered/Resolved]
  - Product complaint [Unknown]
  - Blindness transient [Recovered/Resolved]
  - Respiratory tract infection [Not Recovered/Not Resolved]
  - Cardiac murmur [Not Recovered/Not Resolved]
  - Wrong technique in device usage process [Unknown]
  - Overdose [Unknown]
  - Seizure [Recovered/Resolved]
  - Miosis [Recovered/Resolved]
  - Tremor [Recovered/Resolved]

NARRATIVE: CASE EVENT DATE: 20180923
